FAERS Safety Report 8488469-7 (Version None)
Quarter: 2012Q3

REPORT INFORMATION
  Report Type: 
  Country: None (occurrence: None)
  Receive Date: 20120705
  Receipt Date: 20120626
  Transmission Date: 20120928
  Serious: Yes (Other)
  Sender: FDA-Public Use
  Company Number: NO-BAYER-2012-063603

PATIENT
  Age: 28 Year
  Sex: Female

DRUGS (2)
  1. MIRENA [Suspect]
     Dosage: 20 MCG/24HR, CONT
     Route: 015
     Dates: end: 20120601
  2. MIRENA [Suspect]
     Dosage: 20 MCG/24HR, CONT
     Route: 015
     Dates: start: 20120626

REACTIONS (4)
  - DEVICE DIFFICULT TO USE [None]
  - UTERINE SPASM [None]
  - THROMBOSIS [None]
  - CERVIX DISORDER [None]
